FAERS Safety Report 20897156 (Version 1)
Quarter: 2022Q2

REPORT INFORMATION
  Report Type: Report from Study
  Country: US (occurrence: None)
  Receive Date: 20220531
  Receipt Date: 20220531
  Transmission Date: 20220721
  Serious: Yes (Hospitalization)
  Sender: FDA-Public Use
  Company Number: US-Merck Healthcare KGaA-9326289

PATIENT
  Age: 25 Year
  Sex: Female
  Weight: 46 kg

DRUGS (4)
  1. AVELUMAB [Suspect]
     Active Substance: AVELUMAB
     Indication: Product used for unknown indication
     Route: 042
     Dates: start: 20211209
  2. AVELUMAB [Suspect]
     Active Substance: AVELUMAB
     Route: 042
     Dates: start: 20220519
  3. XL-092 [Suspect]
     Active Substance: XL-092
     Indication: Product used for unknown indication
     Route: 048
     Dates: start: 20211209
  4. XL-092 [Suspect]
     Active Substance: XL-092
     Route: 048
     Dates: start: 20220519

REACTIONS (1)
  - Febrile neutropenia [Unknown]

NARRATIVE: CASE EVENT DATE: 20220520
